FAERS Safety Report 4516279-1 (Version None)
Quarter: 2004Q4

REPORT INFORMATION
  Report Type: 
  Country: None (occurrence: None)
  Receive Date: 20041202
  Receipt Date: 20041118
  Transmission Date: 20050328
  Serious: Yes (Death)
  Sender: FDA-Public Use
  Company Number: CN-JNJFOC-20041104896

PATIENT
  Age: 13 Year
  Sex: Male

DRUGS (1)
  1. PARACETAMOL AND CODEINE [Suspect]
     Indication: ABDOMINAL PAIN

REACTIONS (10)
  - ALANINE AMINOTRANSFERASE INCREASED [None]
  - ARGININOSUCCINATE SYNTHETASE DEFICIENCY [None]
  - COMA [None]
  - CONVULSION [None]
  - ENCEPHALOPATHY [None]
  - GAIT SPASTIC [None]
  - HEADACHE [None]
  - HEPATOMEGALY [None]
  - LETHARGY [None]
  - URINARY INCONTINENCE [None]
